FAERS Safety Report 10190193 (Version 1)
Quarter: 2014Q2

REPORT INFORMATION
  Report Type: Spontaneous
  Country: IT (occurrence: IT)
  Receive Date: 20140522
  Receipt Date: 20140522
  Transmission Date: 20141212
  Serious: Yes (Other)
  Sender: FDA-Public Use
  Company Number: IT-ACTAVIS-2014-10288

PATIENT
  Age: 66 Year
  Sex: Female
  Weight: 50 kg

DRUGS (2)
  1. PACLITAXEL (UNKNOWN) [Suspect]
     Indication: ADENOCARCINOMA PANCREAS
     Dosage: 140 MG, CYCLICAL
     Route: 042
     Dates: start: 20130829, end: 20140324
  2. GEMCITABINE ACCORD [Suspect]
     Indication: ADENOCARCINOMA PANCREAS
     Dosage: 1480 MG, CYCLICAL
     Route: 042
     Dates: start: 20130829, end: 20140324

REACTIONS (2)
  - Thrombocytopenia [Recovering/Resolving]
  - Stomatitis [Unknown]
